FAERS Safety Report 5416635-3 (Version None)
Quarter: 2007Q3

REPORT INFORMATION
  Report Type: 
  Country: None (occurrence: None)
  Receive Date: 20070814
  Receipt Date: 20070806
  Transmission Date: 20080115
  Serious: Yes (Hospitalization)
  Sender: FDA-Public Use
  Company Number: 234544K07USA

PATIENT
  Age: 52 Year
  Sex: Female

DRUGS (2)
  1. REBIF [Suspect]
     Indication: MULTIPLE SCLEROSIS
     Dosage: 44 MCG, 3 IN 1 WEEKS, SUBCUTANEOUS
     Route: 058
     Dates: start: 20070423
  2. NON-STEROIDAL ANTI-INFLAMMATORY DRUGS (NSAID'S) [Concomitant]

REACTIONS (12)
  - CONTUSION [None]
  - GASTRITIS [None]
  - GASTROOESOPHAGEAL REFLUX DISEASE [None]
  - HIATUS HERNIA [None]
  - HYSTERECTOMY [None]
  - INCONTINENCE [None]
  - INFLUENZA LIKE ILLNESS [None]
  - INJECTION SITE ERYTHEMA [None]
  - INJECTION SITE OEDEMA [None]
  - OVARIAN CYST [None]
  - POST PROCEDURAL COMPLICATION [None]
  - PULMONARY OEDEMA [None]
